FAERS Safety Report 23967441 (Version 1)
Quarter: 2024Q2

REPORT INFORMATION
  Report Type: Spontaneous
  Country: US (occurrence: None)
  Receive Date: 20240612
  Receipt Date: 20240612
  Transmission Date: 20240716
  Serious: Yes (Hospitalization)
  Sender: FDA-Public Use
  Company Number: None

PATIENT
  Age: 70 Year
  Sex: Female

DRUGS (1)
  1. DROXIDOPA [Suspect]
     Active Substance: DROXIDOPA
     Indication: Riley-Day syndrome
     Dosage: FREQUENCY : 3 TIMES A DAY;?
     Route: 048
     Dates: start: 202405

REACTIONS (5)
  - Haematuria [None]
  - Headache [None]
  - Dizziness [None]
  - Insomnia [None]
  - Blood pressure decreased [None]

NARRATIVE: CASE EVENT DATE: 20240606
